FAERS Safety Report 8028252-X (Version None)
Quarter: 2012Q1

REPORT INFORMATION
  Report Type: 
  Country: None (occurrence: None)
  Receive Date: 20120106
  Receipt Date: 20120103
  Transmission Date: 20120608
  Serious: Yes (Hospitalization)
  Sender: FDA-Public Use
  Company Number: US-VERTEX PHARMACEUTICALS INC.-AE-2012-000124

PATIENT
  Sex: Female

DRUGS (3)
  1. INCIVEK [Suspect]
     Indication: HEPATITIS C
     Route: 048
     Dates: end: 20111205
  2. PEGASYS [Concomitant]
     Indication: HEPATITIS C
     Dates: end: 20111205
  3. RIBAVIRIN [Concomitant]
     Indication: HEPATITIS C
     Dates: end: 20111205

REACTIONS (2)
  - PYREXIA [None]
  - STEVENS-JOHNSON SYNDROME [None]
